FAERS Safety Report 13252202 (Version 6)
Quarter: 2017Q3

REPORT INFORMATION
  Report Type: Spontaneous
  Country: KR (occurrence: KR)
  Receive Date: 20170220
  Receipt Date: 20170801
  Transmission Date: 20171127
  Serious: Yes (Hospitalization, Other)
  Sender: FDA-Public Use
  Company Number: KR-009507513-1702KOR007138

PATIENT
  Age: 18 Year
  Sex: Female
  Weight: 59.3 kg

DRUGS (11)
  1. EMEND (FOSAPREPITANT DIMEGLUMINE) [Suspect]
     Active Substance: FOSAPREPITANT DIMEGLUMINE
     Indication: PROPHYLAXIS OF NAUSEA AND VOMITING
     Dosage: 150 MG, ONCE
     Route: 042
     Dates: start: 20150907, end: 20150907
  2. ENDOXAN [Concomitant]
     Active Substance: CYCLOPHOSPHAMIDE
     Indication: PRIMARY MEDIASTINAL LARGE B-CELL LYMPHOMA
     Dosage: 1200 MG, ONCE (CYCLE 1)
     Route: 042
     Dates: start: 20150907, end: 20150907
  3. ADRIAMYCIN [Concomitant]
     Active Substance: DOXORUBICIN HYDROCHLORIDE
     Indication: PRIMARY MEDIASTINAL LARGE B-CELL LYMPHOMA
     Dosage: 80 MG, ONCE (CYCLE 1)
     Route: 042
     Dates: start: 20150907, end: 20150907
  4. VINCRISTINE SULFATE. [Concomitant]
     Active Substance: VINCRISTINE SULFATE
     Indication: PRIMARY MEDIASTINAL LARGE B-CELL LYMPHOMA
     Dosage: 2 MG, ONCE (CYCLE 1), STRENGTH: 1MG/ML 1 ML
     Route: 042
     Dates: start: 20150907, end: 20150907
  5. STOGAR [Concomitant]
     Active Substance: LAFUTIDINE
     Indication: PROPHYLAXIS
     Dosage: 10 MG, BID
     Route: 048
     Dates: start: 20150908
  6. NEULASTA [Concomitant]
     Active Substance: PEGFILGRASTIM
     Indication: PROPHYLAXIS
     Dosage: 6 ML, ONCE (PREFILLED SYRINGE)
     Route: 058
     Dates: start: 20150908, end: 20150908
  7. AMMONIUM CHLORIDE (+) CHLORPHENIRAMINE MALEATE (+) DIHYDROCODEINE BITA [Concomitant]
     Indication: COUGH
     Dosage: 45 ML, THREE TIMES A DAY
     Route: 048
     Dates: start: 20150907
  8. ALOXI [Concomitant]
     Active Substance: PALONOSETRON HYDROCHLORIDE
     Indication: PREMEDICATION
     Dosage: 5 ML, ONCE
     Route: 042
     Dates: start: 20150907, end: 20150907
  9. MABTHERA [Concomitant]
     Active Substance: RITUXIMAB
     Indication: PRIMARY MEDIASTINAL LARGE B-CELL LYMPHOMA
     Dosage: 600 MG, ONCE (CYCLE 1)
     Route: 042
     Dates: start: 20150907, end: 20150907
  10. SOLONDO [Concomitant]
     Active Substance: PREDNISOLONE
     Indication: PREMEDICATION
     Dosage: 100 MG, QD
     Route: 048
     Dates: start: 20150907, end: 20150911
  11. LEVOTUSS [Concomitant]
     Active Substance: LEVODROPROPIZINE
     Indication: INFECTION PROPHYLAXIS
     Dosage: 60 MG, TID
     Route: 048
     Dates: start: 20150907

REACTIONS (3)
  - Papilloedema [Recovering/Resolving]
  - Staphylococcal bacteraemia [Recovered/Resolved]
  - Febrile neutropenia [Recovered/Resolved]

NARRATIVE: CASE EVENT DATE: 20150913
